FAERS Safety Report 4316268-6 (Version None)
Quarter: 2004Q1

REPORT INFORMATION
  Report Type: 
  Country: None (occurrence: None)
  Receive Date: 20040310
  Receipt Date: 20030516
  Transmission Date: 20041129
  Serious: Yes (Hospitalization, Other)
  Sender: FDA-Public Use
  Company Number: HQ5344515NOV2002

PATIENT
  Sex: Female

DRUGS (1)
  1. PROTONIX [Suspect]
     Indication: ABDOMINAL PAIN UPPER

REACTIONS (5)
  - DISCOMFORT [None]
  - HEADACHE [None]
  - INSOMNIA [None]
  - MELAENA [None]
  - NAUSEA [None]
